FAERS Safety Report 4895161-4 (Version None)
Quarter: 2006Q1

REPORT INFORMATION
  Report Type: 
  Country: None (occurrence: None)
  Receive Date: 20060130
  Receipt Date: 20050801
  Transmission Date: 20060701
  Serious: Yes (Hospitalization)
  Sender: FDA-Public Use
  Company Number: GB-BRISTOL-MYERS SQUIBB COMPANY-13252630

PATIENT
  Age: 78 Year
  Sex: Female

DRUGS (6)
  1. TRAZODONE HCL [Suspect]
     Indication: DEPRESSION
     Route: 048
     Dates: end: 20050713
  2. PHENYTOIN [Concomitant]
  3. ASPIRIN [Concomitant]
  4. VALPROATE SODIUM [Concomitant]
  5. MULTIVITAMIN [Concomitant]
  6. PARACETAMOL [Concomitant]

REACTIONS (1)
  - BLOOD SODIUM DECREASED [None]
